FAERS Safety Report 10195714 (Version 1)
Quarter: 2014Q2

REPORT INFORMATION
  Report Type: Report from Study
  Country: RS (occurrence: RS)
  Receive Date: 20140527
  Receipt Date: 20140527
  Transmission Date: 20141212
  Serious: Yes (Death)
  Sender: FDA-Public Use
  Company Number: RS-ROCHE-1407108

PATIENT
  Sex: Female
  Weight: 52 kg

DRUGS (2)
  1. CAPECITABINE [Suspect]
     Indication: ADENOCARCINOMA OF COLON
     Route: 065
     Dates: start: 20080613, end: 20081202
  2. CAPECITABINE [Suspect]
     Indication: ADJUVANT THERAPY

REACTIONS (1)
  - Cerebrovascular accident [Fatal]
